FAERS Safety Report 4511825-6 (Version None)
Quarter: 2004Q4

REPORT INFORMATION
  Report Type: 
  Country: None (occurrence: None)
  Receive Date: 20041123
  Receipt Date: 20041115
  Transmission Date: 20050328
  Serious: Yes (Death, Hospitalization)
  Sender: FDA-Public Use
  Company Number: USA-2004-0013543

PATIENT
  Age: 31 Year
  Sex: Male

DRUGS (8)
  1. OXYCONTIN [Suspect]
     Dosage: 20 MG, BID, ORAL
     Route: 048
     Dates: start: 20020101
  2. TEMAZEPAM [Concomitant]
  3. ACIPHEX [Concomitant]
  4. CELEBREX [Concomitant]
  5. ALBUTEROL [Concomitant]
  6. EFFEXOR [Concomitant]
  7. PAXIL [Concomitant]
  8. NITROSTAT [Concomitant]

REACTIONS (2)
  - MYOCARDIAL INFARCTION [None]
  - PULMONARY EMBOLISM [None]
